FAERS Safety Report 5196397-8 (Version None)
Quarter: 2007Q1

REPORT INFORMATION
  Report Type: 
  Country: None (occurrence: None)
  Receive Date: 20070102
  Receipt Date: 20061221
  Transmission Date: 20070707
  Serious: Yes (Hospitalization)
  Sender: FDA-Public Use
  Company Number: AU-MERCK-0612AUS00141

PATIENT
  Age: 53 Year
  Sex: Male

DRUGS (6)
  1. FOSAMAX [Suspect]
     Indication: OSTEOPOROSIS
     Route: 048
  2. ALBUTEROL [Concomitant]
     Indication: BRONCHIECTASIS
  3. IPRATROPIUM BROMIDE [Concomitant]
     Indication: BRONCHIECTASIS
     Route: 048
  4. CALCIUM CARBONATE [Concomitant]
     Indication: MINERAL SUPPLEMENTATION
     Route: 048
  5. GENTAMICIN [Suspect]
     Indication: CHRONIC OBSTRUCTIVE PULMONARY DISEASE
     Route: 042
  6. TOBRAMYCIN [Suspect]
     Indication: LUNG INFECTION PSEUDOMONAL
     Route: 042

REACTIONS (2)
  - FANCONI SYNDROME ACQUIRED [None]
  - INFECTIVE EXACERBATION OF CHRONIC OBSTRUCTIVE AIRWAYS DISEASE [None]
